FAERS Safety Report 16796286 (Version 1)
Quarter: 2019Q3

REPORT INFORMATION
  Report Type: Spontaneous
  Country: US (occurrence: US)
  Receive Date: 20190722
  Receipt Date: 20190722
  Transmission Date: 20191005
  Serious: No
  Sender: FDA-Public Use
  Company Number: None

PATIENT
  Age: 60 Year
  Sex: Male

DRUGS (1)
  1. TRIUMEQ [Suspect]
     Active Substance: ABACAVIR SULFATE\DOLUTEGRAVIR SODIUM\LAMIVUDINE
     Indication: HEPATITIS B
     Dates: start: 201507

REACTIONS (4)
  - Diarrhoea [None]
  - Decreased appetite [None]
  - Product distribution issue [None]
  - Therapy cessation [None]

NARRATIVE: CASE EVENT DATE: 20190718
